FAERS Safety Report 15418762 (Version 1)
Quarter: 2018Q3

REPORT INFORMATION
  Report Type: Spontaneous
  Country: BR (occurrence: BR)
  Receive Date: 20180924
  Receipt Date: 20180924
  Transmission Date: 20181010
  Serious: Yes (Hospitalization, Other)
  Sender: FDA-Public Use
  Company Number: BR-JNJFOC-20180918604

PATIENT
  Age: 86 Year
  Sex: Male

DRUGS (1)
  1. ZYTIGA [Suspect]
     Active Substance: ABIRATERONE ACETATE
     Indication: PRODUCT USED FOR UNKNOWN INDICATION
     Route: 048
     Dates: start: 201710

REACTIONS (5)
  - Gingivitis [Not Recovered/Not Resolved]
  - Tooth fracture [Unknown]
  - Post procedural infection [Not Recovered/Not Resolved]
  - Tooth loss [Unknown]
  - Tooth disorder [Unknown]

NARRATIVE: CASE EVENT DATE: 20180830
